FAERS Safety Report 23019778 (Version 4)
Quarter: 2024Q1

REPORT INFORMATION
  Report Type: Report from Study
  Country: BR (occurrence: BR)
  Receive Date: 20231003
  Receipt Date: 20240301
  Transmission Date: 20240410
  Serious: Yes (Hospitalization)
  Sender: FDA-Public Use
  Company Number: BR-JNJFOC-20230960143

PATIENT
  Age: 65 Year
  Sex: Female
  Weight: 28 kg

DRUGS (2)
  1. INFLIXIMAB [Suspect]
     Active Substance: INFLIXIMAB
     Indication: Crohn^s disease
     Route: 041
  2. REMICADE [Suspect]
     Active Substance: INFLIXIMAB
     Indication: Crohn^s disease
     Dosage: 100MG EACH EVERY 56 DAYS.?START DATE ALSO GIVEN AS 18/FEB/2022
     Route: 041
     Dates: start: 20220202

REACTIONS (12)
  - Hypersensitivity [Recovered/Resolved]
  - Infusion related reaction [Unknown]
  - Haematemesis [Unknown]
  - Intestinal operation [Unknown]
  - Gait disturbance [Unknown]
  - Memory impairment [Recovered/Resolved]
  - Weight decreased [Unknown]
  - Hypoaesthesia [Recovered/Resolved]
  - Chest discomfort [Recovered/Resolved]
  - Drug ineffective [Recovered/Resolved]
  - Vomiting [Recovered/Resolved]
  - Off label use [Unknown]

NARRATIVE: CASE EVENT DATE: 20220202
